FAERS Safety Report 8456483-3 (Version None)
Quarter: 2012Q2

REPORT INFORMATION
  Report Type: 
  Country: None (occurrence: None)
  Receive Date: 20120621
  Receipt Date: 20120618
  Transmission Date: 20120825
  Serious: Yes (Hospitalization)
  Sender: FDA-Public Use
  Company Number: PHEH2012US012097

PATIENT
  Sex: Female

DRUGS (5)
  1. DOXAZOSIN MESYLATE [Concomitant]
     Dosage: 2 MG, UNK
  2. SYNTHROID [Concomitant]
     Dosage: 100 MG, UNK
  3. DEPAKOTE [Concomitant]
     Dosage: 150 MG, UNK
  4. FOLIC ACID [Concomitant]
     Dosage: 800 UG, UNK
  5. EXFORGE HCT [Suspect]
     Dosage: UNK UKN, UNK

REACTIONS (2)
  - BLOOD SODIUM ABNORMAL [None]
  - CONVULSION [None]
